FAERS Safety Report 7411076-1 (Version None)
Quarter: 2011Q2

REPORT INFORMATION
  Report Type: 
  Country: None (occurrence: None)
  Receive Date: 20110413
  Receipt Date: 20110404
  Transmission Date: 20111010
  Serious: Yes (Hospitalization, Disabling)
  Sender: FDA-Public Use
  Company Number: DE-SANOFI-AVENTIS-2011SA020121

PATIENT
  Age: 48 Year
  Sex: Female
  Weight: 63 kg

DRUGS (6)
  1. QUENSYL [Suspect]
     Route: 048
     Dates: start: 20100901, end: 20110201
  2. MTX [Suspect]
     Route: 048
     Dates: start: 20110101, end: 20110101
  3. LEVOTHYROXINE SODIUM [Concomitant]
  4. DUPHASTON [Concomitant]
  5. PREDNI TABLINEN [Suspect]
     Route: 048
  6. BISOPROLOL [Concomitant]

REACTIONS (3)
  - NAUSEA [None]
  - FATIGUE [None]
  - GASTRIC MUCOSAL LESION [None]
